FAERS Safety Report 6686108-9 (Version None)
Quarter: 2010Q2

REPORT INFORMATION
  Report Type: 
  Country: None (occurrence: None)
  Receive Date: 20100419
  Receipt Date: 20100412
  Transmission Date: 20101027
  Serious: Yes (Death, Hospitalization, Other)
  Sender: FDA-Public Use
  Company Number: JP-BRISTOL-MYERS SQUIBB COMPANY-14672364

PATIENT
  Age: 68 Year
  Sex: Female
  Weight: 47 kg

DRUGS (28)
  1. SPRYCEL [Suspect]
     Indication: ACUTE LYMPHOCYTIC LEUKAEMIA
     Dosage: 21APR09-17MAY09 50MG BID,18MAY09-13JUN0970MG BID;24JUN09-15AUG09:50MG/D
     Route: 048
     Dates: start: 20090421, end: 20090815
  2. IMATINIB MESILATE [Suspect]
     Indication: ACUTE LYMPHOCYTIC LEUKAEMIA
     Dosage: 1 DF=TAB, TOOK 300-600 MG/DAY FROM 29-JAN-09 TO 20-FEB-09
     Route: 048
     Dates: start: 20090324, end: 20090325
  3. POLYMYXIN-B-SULFATE [Concomitant]
     Indication: INFECTION PROPHYLAXIS
     Dosage: 1DOSAGEFORM=3TABS
     Route: 048
     Dates: end: 20090723
  4. BIFIDOBACTERIUM BIFIDUM [Concomitant]
     Indication: ACUTE LYMPHOCYTIC LEUKAEMIA
     Dosage: FORMULATION=GRAN
     Route: 048
     Dates: end: 20090814
  5. MOSAPRIDE CITRATE [Concomitant]
     Indication: GASTRITIS
     Dosage: HYDRATE
     Route: 048
     Dates: end: 20090619
  6. MECOBALAMIN [Concomitant]
     Indication: NEUROPATHY PERIPHERAL
     Route: 048
     Dates: end: 20090527
  7. OMEPRAZOLE [Concomitant]
     Indication: REFLUX OESOPHAGITIS
     Dosage: TABS
     Route: 048
     Dates: end: 20090806
  8. VALSARTAN [Concomitant]
     Indication: HYPERTENSION
     Dosage: TABS
     Route: 048
     Dates: end: 20090815
  9. PROPRANOLOL HYDROCHLORIDE [Concomitant]
     Indication: HYPERTENSION
     Dosage: TABS
     Route: 048
     Dates: end: 20090706
  10. SENNOSIDE A+B [Concomitant]
     Indication: CONSTIPATION
     Dosage: TABS
     Route: 048
     Dates: end: 20090612
  11. POTASSIUM CHLORIDE [Concomitant]
     Indication: HYPOKALAEMIA
     Dosage: TABS
     Route: 048
     Dates: end: 20090612
  12. ALLOPURINOL [Concomitant]
     Indication: HYPERURICAEMIA
     Dosage: TABS
     Route: 048
     Dates: end: 20090815
  13. FLUCONAZOLE [Concomitant]
     Indication: INFECTION PROPHYLAXIS
     Dosage: REDUCED TO 100MG
     Route: 048
     Dates: start: 20090430, end: 20090810
  14. METHOTREXATE [Concomitant]
     Indication: ACUTE LYMPHOCYTIC LEUKAEMIA
     Route: 042
     Dates: start: 20090525, end: 20090525
  15. CYTARABINE [Concomitant]
     Indication: ACUTE LYMPHOCYTIC LEUKAEMIA
     Route: 042
     Dates: start: 20090525, end: 20090525
  16. VINDESINE SULFATE [Concomitant]
     Indication: ACUTE LYMPHOCYTIC LEUKAEMIA
     Route: 042
     Dates: start: 20090626, end: 20090626
  17. PIRARUBICIN [Concomitant]
     Indication: ACUTE LYMPHOCYTIC LEUKAEMIA
     Route: 042
     Dates: start: 20090626, end: 20090626
  18. CYCLOPHOSPHAMIDE [Concomitant]
     Indication: ACUTE LYMPHOCYTIC LEUKAEMIA
     Route: 042
     Dates: start: 20090626, end: 20090626
  19. FUROSEMIDE [Concomitant]
     Indication: HYPERTENSION
     Route: 048
     Dates: start: 20090521, end: 20090815
  20. SPIRONOLACTONE [Concomitant]
     Indication: HYPERTENSION
     Route: 048
     Dates: start: 20090522, end: 20090814
  21. PREDNISOLONE [Concomitant]
     Indication: INFECTION PROPHYLAXIS
     Route: 048
     Dates: start: 20090616, end: 20090807
  22. MAGNESIUM OXIDE [Concomitant]
     Indication: CONSTIPATION
     Route: 048
     Dates: start: 20090710, end: 20090814
  23. GABAPENTIN [Concomitant]
     Indication: NEUROPATHY PERIPHERAL
     Route: 048
     Dates: start: 20090719, end: 20090814
  24. VALACYCLOVIR HCL [Concomitant]
     Indication: GENITAL HERPES
     Route: 048
     Dates: start: 20090722, end: 20090814
  25. VEPESID [Concomitant]
     Indication: ACUTE LYMPHOCYTIC LEUKAEMIA
     Route: 048
     Dates: start: 20090722, end: 20090803
  26. ACETAMINOPHEN [Concomitant]
     Indication: PRURITUS
     Route: 048
     Dates: start: 20090803, end: 20090814
  27. OXYCODONE HCL [Concomitant]
     Indication: BONE PAIN
     Dosage: FORM=TABS
     Route: 048
     Dates: start: 20090814, end: 20090818
  28. LENOGRASTIM [Concomitant]
     Route: 058
     Dates: start: 20090109, end: 20090724

REACTIONS (14)
  - ANAEMIA [None]
  - DECREASED APPETITE [None]
  - DEHYDRATION [None]
  - DIARRHOEA [None]
  - GASTROINTESTINAL DISORDER [None]
  - GASTROINTESTINAL HAEMORRHAGE [None]
  - HEADACHE [None]
  - MALIGNANT NEOPLASM PROGRESSION [None]
  - NAUSEA [None]
  - PLATELET COUNT DECREASED [None]
  - RASH [None]
  - SEPSIS [None]
  - VOMITING [None]
  - WHITE BLOOD CELL COUNT DECREASED [None]
